FAERS Safety Report 8308393-X (Version None)
Quarter: 2012Q2

REPORT INFORMATION
  Report Type: 
  Country: None (occurrence: None)
  Receive Date: 20120424
  Receipt Date: 20120412
  Transmission Date: 20120825
  Serious: Yes (Other)
  Sender: FDA-Public Use
  Company Number: US-ROCHE-1059557

PATIENT
  Sex: Male

DRUGS (10)
  1. XOLAIR [Suspect]
     Indication: PRODUCT USED FOR UNKNOWN INDICATION
     Route: 058
     Dates: start: 20090302, end: 20120410
  2. FOCALIN XR [Concomitant]
  3. PROVENTIL [Concomitant]
  4. ADVAIR DISKUS 100/50 [Concomitant]
  5. ZYFLO CR [Concomitant]
  6. BACLOFEN [Concomitant]
  7. EPINEPHRINE [Concomitant]
  8. LASIX [Concomitant]
  9. VERAMYST [Concomitant]
  10. CLOBETASOL PROPIONATE [Concomitant]

REACTIONS (1)
  - ANAPHYLACTIC REACTION [None]
